FAERS Safety Report 6236505-0 (Version None)
Quarter: 2009Q2

REPORT INFORMATION
  Report Type: 
  Country: None (occurrence: None)
  Receive Date: 20090619
  Receipt Date: 20090610
  Transmission Date: 20091009
  Serious: Yes (Hospitalization)
  Sender: FDA-Public Use
  Company Number: A0759186A

PATIENT
  Age: 62 Year
  Sex: Female
  Weight: 71.8 kg

DRUGS (10)
  1. AVANDIA [Suspect]
     Dosage: 4MG TWICE PER DAY
     Route: 048
     Dates: start: 20040303, end: 20070601
  2. GLUCOTROL [Concomitant]
     Dates: start: 20000101, end: 20050101
  3. METOPROLOL SUCCINATE [Concomitant]
  4. HYDROCHLOROTHIAZIDE [Concomitant]
  5. LIPITOR [Concomitant]
  6. GLIPIZIDE [Concomitant]
  7. OMEPRAZOLE [Concomitant]
  8. VASOTEC [Concomitant]
  9. COZAAR [Concomitant]
  10. METFORMIN HCL [Concomitant]

REACTIONS (1)
  - MYOCARDIAL INFARCTION [None]
